FAERS Safety Report 16022521 (Version 2)
Quarter: 2019Q3

REPORT INFORMATION
  Report Type: Spontaneous
  Country: US (occurrence: US)
  Receive Date: 20190301
  Receipt Date: 20190724
  Transmission Date: 20191004
  Serious: Yes (Hospitalization, Other)
  Sender: FDA-Public Use
  Company Number: US-JNJFOC-20190240102

PATIENT
  Age: 64 Year
  Sex: Male

DRUGS (2)
  1. INVOKANA [Suspect]
     Active Substance: CANAGLIFLOZIN
     Indication: TYPE 2 DIABETES MELLITUS
     Route: 048
     Dates: start: 20151201, end: 20160314
  2. INVOKANA [Suspect]
     Active Substance: CANAGLIFLOZIN
     Dosage: 300 MG AND 100 MG
     Route: 048
     Dates: end: 201706

REACTIONS (3)
  - Adverse drug reaction [Unknown]
  - Osteomyelitis [Unknown]
  - Toe amputation [Unknown]

NARRATIVE: CASE EVENT DATE: 201706
